FAERS Safety Report 21693801 (Version 3)
Quarter: 2025Q2

REPORT INFORMATION
  Report Type: Spontaneous
  Country: ES (occurrence: ES)
  Receive Date: 20221207
  Receipt Date: 20250612
  Transmission Date: 20250716
  Serious: Yes (Other)
  Sender: MYLAN
  Company Number: ES-ASTELLAS-2022US035439

PATIENT
  Age: 66 Year
  Sex: Male

DRUGS (48)
  1. ABIRATERONE [Suspect]
     Active Substance: ABIRATERONE
     Indication: Product used for unknown indication
  2. ABIRATERONE [Suspect]
     Active Substance: ABIRATERONE
     Route: 065
  3. ABIRATERONE [Suspect]
     Active Substance: ABIRATERONE
     Route: 065
  4. ABIRATERONE [Suspect]
     Active Substance: ABIRATERONE
  5. DOCETAXEL [Suspect]
     Active Substance: DOCETAXEL
     Indication: Product used for unknown indication
  6. DOCETAXEL [Suspect]
     Active Substance: DOCETAXEL
     Route: 065
  7. DOCETAXEL [Suspect]
     Active Substance: DOCETAXEL
     Route: 065
  8. DOCETAXEL [Suspect]
     Active Substance: DOCETAXEL
  9. CARBOPLATIN [Suspect]
     Active Substance: CARBOPLATIN
     Indication: Product used for unknown indication
  10. CARBOPLATIN [Suspect]
     Active Substance: CARBOPLATIN
     Route: 065
  11. CARBOPLATIN [Suspect]
     Active Substance: CARBOPLATIN
     Route: 065
  12. CARBOPLATIN [Suspect]
     Active Substance: CARBOPLATIN
  13. GONADORELIN DIACETATE TETRAHYDRATE [Suspect]
     Active Substance: GONADORELIN DIACETATE TETRAHYDRATE
     Indication: Product used for unknown indication
  14. GONADORELIN DIACETATE TETRAHYDRATE [Suspect]
     Active Substance: GONADORELIN DIACETATE TETRAHYDRATE
     Indication: Hormone-refractory prostate cancer
     Route: 065
  15. GONADORELIN DIACETATE TETRAHYDRATE [Suspect]
     Active Substance: GONADORELIN DIACETATE TETRAHYDRATE
     Route: 065
  16. GONADORELIN DIACETATE TETRAHYDRATE [Suspect]
     Active Substance: GONADORELIN DIACETATE TETRAHYDRATE
  17. ETOPOSIDE [Suspect]
     Active Substance: ETOPOSIDE
     Indication: Product used for unknown indication
  18. ETOPOSIDE [Suspect]
     Active Substance: ETOPOSIDE
     Route: 065
  19. ETOPOSIDE [Suspect]
     Active Substance: ETOPOSIDE
     Route: 065
  20. ETOPOSIDE [Suspect]
     Active Substance: ETOPOSIDE
  21. CYCLOPHOSPHAMIDE [Suspect]
     Active Substance: CYCLOPHOSPHAMIDE
     Indication: Product used for unknown indication
  22. CYCLOPHOSPHAMIDE [Suspect]
     Active Substance: CYCLOPHOSPHAMIDE
     Indication: Hormone-refractory prostate cancer
     Route: 048
  23. CYCLOPHOSPHAMIDE [Suspect]
     Active Substance: CYCLOPHOSPHAMIDE
     Route: 048
  24. CYCLOPHOSPHAMIDE [Suspect]
     Active Substance: CYCLOPHOSPHAMIDE
  25. XTANDI [Suspect]
     Active Substance: ENZALUTAMIDE
     Indication: Product used for unknown indication
  26. XTANDI [Suspect]
     Active Substance: ENZALUTAMIDE
     Indication: Hormone-refractory prostate cancer
     Route: 065
  27. XTANDI [Suspect]
     Active Substance: ENZALUTAMIDE
     Route: 065
  28. XTANDI [Suspect]
     Active Substance: ENZALUTAMIDE
  29. OMEPRAZOLE [Concomitant]
     Active Substance: OMEPRAZOLE
     Indication: Product used for unknown indication
  30. OMEPRAZOLE [Concomitant]
     Active Substance: OMEPRAZOLE
     Route: 065
  31. OMEPRAZOLE [Concomitant]
     Active Substance: OMEPRAZOLE
     Route: 065
  32. OMEPRAZOLE [Concomitant]
     Active Substance: OMEPRAZOLE
  33. BISOPROLOL [Concomitant]
     Active Substance: BISOPROLOL
     Indication: Product used for unknown indication
  34. BISOPROLOL [Concomitant]
     Active Substance: BISOPROLOL
     Route: 065
  35. BISOPROLOL [Concomitant]
     Active Substance: BISOPROLOL
     Route: 065
  36. BISOPROLOL [Concomitant]
     Active Substance: BISOPROLOL
  37. ZOLPIDEM [Concomitant]
     Active Substance: ZOLPIDEM TARTRATE
     Indication: Product used for unknown indication
  38. ZOLPIDEM [Concomitant]
     Active Substance: ZOLPIDEM TARTRATE
     Route: 065
  39. ZOLPIDEM [Concomitant]
     Active Substance: ZOLPIDEM TARTRATE
     Route: 065
  40. ZOLPIDEM [Concomitant]
     Active Substance: ZOLPIDEM TARTRATE
  41. FENTANYL [Concomitant]
     Active Substance: FENTANYL
     Indication: Product used for unknown indication
  42. FENTANYL [Concomitant]
     Active Substance: FENTANYL
     Route: 065
  43. FENTANYL [Concomitant]
     Active Substance: FENTANYL
     Route: 065
  44. FENTANYL [Concomitant]
     Active Substance: FENTANYL
  45. DEXAMETHASONE [Concomitant]
     Active Substance: DEXAMETHASONE
     Indication: Product used for unknown indication
  46. DEXAMETHASONE [Concomitant]
     Active Substance: DEXAMETHASONE
     Route: 065
  47. DEXAMETHASONE [Concomitant]
     Active Substance: DEXAMETHASONE
     Route: 065
  48. DEXAMETHASONE [Concomitant]
     Active Substance: DEXAMETHASONE

REACTIONS (2)
  - Malignant neoplasm progression [Unknown]
  - Renal impairment [Unknown]
